FAERS Safety Report 23770801 (Version 1)
Quarter: 2024Q2

REPORT INFORMATION
  Report Type: Spontaneous
  Country: US (occurrence: US)
  Receive Date: 20240422
  Receipt Date: 20240422
  Transmission Date: 20240715
  Serious: Yes (Hospitalization, Other)
  Sender: FDA-Public Use
  Company Number: US-JNJFOC-20240452959

PATIENT
  Age: 59 Year
  Sex: Female

DRUGS (17)
  1. PREZCOBIX [Suspect]
     Active Substance: COBICISTAT\DARUNAVIR ETHANOLATE
     Indication: HIV infection
     Dosage: QD (800-150 MG-MG)
     Route: 048
  2. CABENUVA [Suspect]
     Active Substance: CABOTEGRAVIR\RILPIVIRINE
     Indication: HIV infection
     Dosage: MO ( 600 MG/3 ML- 900 MG/3 ML)?ON 12-FEB-2024, THE DOSE WAS CHANGED TO EVERY 2 MONTHS.
     Route: 030
     Dates: start: 202311
  3. CABENUVA [Suspect]
     Active Substance: CABOTEGRAVIR\RILPIVIRINE
     Dosage: UNK UNK, Q2M,( 600 MG/3 ML- 900 MG/3 ML)
     Route: 030
     Dates: start: 20240212
  4. ALBUTEROL SULFATE [Suspect]
     Active Substance: ALBUTEROL SULFATE
     Indication: Wheezing
     Dosage: 2 PUFF(S), 6D, AS NEEDED ( 90MCG/ACTUATION)?(EVERY 4 HOURS) (12 PUFF(S) DAILY)
     Route: 065
  5. ALBUTEROL SULFATE [Suspect]
     Active Substance: ALBUTEROL SULFATE
     Indication: Dyspnoea
  6. ASPIRIN [Suspect]
     Active Substance: ASPIRIN
     Indication: Peripheral arterial occlusive disease
     Dosage: 1 DF, QD (CHEWABLE)
     Route: 048
  7. LIPITOR [Suspect]
     Active Substance: ATORVASTATIN CALCIUM
     Indication: Peripheral arterial occlusive disease
     Dosage: 1 DF, QD
     Route: 048
  8. BIKTARVY [Suspect]
     Active Substance: BICTEGRAVIR SODIUM\EMTRICITABINE\TENOFOVIR ALAFENAMIDE FUMARATE
     Indication: HIV infection
     Dosage: 1 DF, QD ( 50-200-25 MG)
     Route: 048
  9. SYMBICORT [Suspect]
     Active Substance: BUDESONIDE\FORMOTEROL FUMARATE DIHYDRATE
     Indication: Product used for unknown indication
     Dosage: 2 PUFF(S), BID (160-4.5 MCG/ACTUATION)
     Route: 055
  10. NEURONTIN [Suspect]
     Active Substance: GABAPENTIN
     Indication: Product used for unknown indication
     Dosage: 1 DF, TID (WITH MEALS, 1 CAPSULE IN THE MORNING AND 2 AT NIGHT)
     Route: 048
  11. DUONEB [Suspect]
     Active Substance: ALBUTEROL SULFATE\IPRATROPIUM BROMIDE
     Indication: Wheezing
     Dosage: 3 ML, QID, (0.5 MG-3 MG(2.5 MG BASE)/3 ML NEBULIZER SOLUTION)
     Route: 055
  12. DUONEB [Suspect]
     Active Substance: ALBUTEROL SULFATE\IPRATROPIUM BROMIDE
     Indication: Dyspnoea
  13. DEPAKOTE ER [Suspect]
     Active Substance: DIVALPROEX SODIUM
     Indication: Product used for unknown indication
     Dosage: 3 DF, QD, EXTENDED RELEASE, 24 HR)
     Route: 048
  14. ZINC OXIDE [Suspect]
     Active Substance: ZINC OXIDE
     Indication: Rash
     Dosage: BID AS DAILY(20-51 %)
     Route: 061
  15. PLAVIX [Suspect]
     Active Substance: CLOPIDOGREL BISULFATE
     Indication: Product used for unknown indication
     Route: 065
  16. PRILOSEC [Suspect]
     Active Substance: OMEPRAZOLE MAGNESIUM
     Indication: Product used for unknown indication
     Dosage: 1 DF, QD
     Route: 048
  17. SPIRIVA RESPIMAT [Suspect]
     Active Substance: TIOTROPIUM BROMIDE
     Indication: Product used for unknown indication
     Dosage: 2 PUFF(S), QD (2.5 MCG/ACTUATION)
     Route: 055

REACTIONS (14)
  - Pneumonia streptococcal [Unknown]
  - Fatigue [Unknown]
  - Ill-defined disorder [Unknown]
  - Mental status changes [Unknown]
  - Urinary incontinence [Unknown]
  - Deafness [Unknown]
  - Staphylococcal infection [Unknown]
  - Lung consolidation [Unknown]
  - Visual impairment [Unknown]
  - Rash [Unknown]
  - Wheezing [Unknown]
  - Dyspnoea [Unknown]
  - Rales [Unknown]
  - Rhonchi [Unknown]

NARRATIVE: CASE EVENT DATE: 20240302
